FAERS Safety Report 5978603-2 (Version None)
Quarter: 2008Q4

REPORT INFORMATION
  Report Type: 
  Country: None (occurrence: None)
  Receive Date: 20081204
  Receipt Date: 20081201
  Transmission Date: 20090506
  Serious: Yes (Other)
  Sender: FDA-Public Use
  Company Number: B0548453A

PATIENT
  Sex: Female

DRUGS (3)
  1. ZANTAC [Suspect]
     Indication: GASTRIC ULCER
     Route: 048
     Dates: end: 20081010
  2. GASTROM [Concomitant]
     Route: 048
  3. MUCOSTA [Concomitant]
     Route: 048

REACTIONS (10)
  - ABASIA [None]
  - ADVERSE DRUG REACTION [None]
  - ANGINA PECTORIS [None]
  - BLOOD PRESSURE INCREASED [None]
  - CHEST DISCOMFORT [None]
  - HEART RATE DECREASED [None]
  - HYPOAESTHESIA [None]
  - MYALGIA [None]
  - PAIN [None]
  - RHABDOMYOLYSIS [None]
